FAERS Safety Report 4749342-0 (Version None)
Quarter: 2005Q3

REPORT INFORMATION
  Report Type: 
  Country: None (occurrence: None)
  Receive Date: 20050819
  Receipt Date: 20030908
  Transmission Date: 20060218
  Serious: Yes (Hospitalization)
  Sender: FDA-Public Use
  Company Number: JP-ABBOTT-03P-087-0233625-00

PATIENT
  Sex: Male

DRUGS (5)
  1. KALETRA [Suspect]
     Indication: HIV INFECTION
     Route: 048
     Dates: start: 20011116
  2. SAQUINAVIR [Suspect]
     Indication: HIV INFECTION
     Route: 048
     Dates: start: 20000829
  3. STAVUDINE [Suspect]
     Indication: HIV INFECTION
     Route: 048
     Dates: start: 20000613
  4. LAMIVUDINE [Suspect]
     Indication: HIV INFECTION
     Route: 048
     Dates: start: 20000613
  5. BACTRIM [Concomitant]
     Indication: INFECTION PROPHYLAXIS
     Route: 048
     Dates: start: 20000525, end: 20020509

REACTIONS (9)
  - CEREBRAL INFARCTION [None]
  - CONSTIPATION [None]
  - DIZZINESS [None]
  - GLAUCOMA [None]
  - HYPERTENSION [None]
  - INSOMNIA [None]
  - STAPHYLOCOCCAL INFECTION [None]
  - ULCERATIVE KERATITIS [None]
  - URINARY SEDIMENT ABNORMAL [None]
